FAERS Safety Report 8895276 (Version 2)
Quarter: 2013Q1

REPORT INFORMATION
  Report Type: Spontaneous
  Country: US (occurrence: US)
  Receive Date: 20121108
  Receipt Date: 20130124
  Transmission Date: 20140127
  Serious: No
  Sender: FDA-Public Use
  Company Number: US-ELI_LILLY_AND_COMPANY-US201210009584

PATIENT
  Sex: Female
  Weight: 82.09 kg

DRUGS (11)
  1. CYMBALTA [Suspect]
     Indication: DEPRESSION
     Dosage: 30 MG, BID
  2. EFFIENT [Suspect]
     Indication: STENT PLACEMENT
     Dosage: 10 MG, QD
     Dates: start: 20121025
  3. ASPIRIN [Concomitant]
     Dosage: 325 MG, QD
  4. HYDROCHLOROTHIAZIDE [Concomitant]
     Dosage: 25 MG, QD
  5. COZAAR [Concomitant]
     Dosage: 25 MG, EACH EVENING
  6. NEXIUM [Concomitant]
     Dosage: 20 MG, QD
  7. METFORMIN [Concomitant]
     Dosage: 250 MG, QID
  8. CALCIUM [Concomitant]
     Dosage: 1 DF, BID
  9. B12 [Concomitant]
     Dosage: 1 DF, MONTHLY (1/M)
  10. VITAMIN D [Concomitant]
     Dosage: UNK, QD
  11. PRAVASTATIN [Concomitant]
     Dosage: 40 MG, QD

REACTIONS (2)
  - Skin discolouration [Unknown]
  - Appetite disorder [Unknown]
